FAERS Safety Report 6161985-9 (Version None)
Quarter: 2009Q2

REPORT INFORMATION
  Report Type: 
  Country: None (occurrence: None)
  Receive Date: 20090421
  Receipt Date: 20090406
  Transmission Date: 20091009
  Serious: Yes (Hospitalization, Other)
  Sender: FDA-Public Use
  Company Number: FR-TEVA-191694ISR

PATIENT
  Age: 83 Year
  Sex: Female
  Weight: 79 kg

DRUGS (15)
  1. FLUOROURACIL [Suspect]
     Indication: COLORECTAL CANCER
     Route: 040
     Dates: start: 20070717
  2. FLUOROURACIL [Suspect]
     Dates: start: 20070717
  3. IRINOTECAN HCL [Suspect]
     Indication: COLORECTAL CANCER
     Dates: start: 20070717
  4. FOLINIC ACID [Suspect]
     Indication: COLORECTAL CANCER
     Dates: start: 20070717
  5. THEOPHYLLINE [Concomitant]
  6. FORMOTEROL [Concomitant]
  7. FLUTICASONE [Concomitant]
  8. TRIMETAZIDINE HYDROCHLORIDE [Concomitant]
  9. POTASSIUM CHLORIDE [Concomitant]
  10. PRUNUS AFRICANA [Concomitant]
  11. CARBOCISTEINE [Concomitant]
  12. GRANISETRON HCL [Concomitant]
  13. LOPERAMIDE HCL [Concomitant]
  14. DUTASTERIDE [Concomitant]
  15. SPASFON [Concomitant]

REACTIONS (5)
  - ARRHYTHMIA [None]
  - CARDIAC FAILURE [None]
  - DIARRHOEA [None]
  - MUCOSAL INFLAMMATION [None]
  - SEPSIS [None]
